FAERS Safety Report 19855393 (Version 2)
Quarter: 2021Q4

REPORT INFORMATION
  Report Type: Report from Study
  Country: CA (occurrence: CA)
  Receive Date: 20210920
  Receipt Date: 20211001
  Transmission Date: 20220303
  Serious: Yes (Other)
  Sender: FDA-Public Use
  Company Number: CA-JNJFOC-20210930090

PATIENT
  Age: 66 Year
  Sex: Male
  Weight: 82.5 kg

DRUGS (1)
  1. REMICADE [Suspect]
     Active Substance: INFLIXIMAB
     Indication: Crohn^s disease
     Route: 042

REACTIONS (3)
  - Neoplasm prostate [Unknown]
  - Off label use [Unknown]
  - Incorrect drug administration rate [Unknown]
